FAERS Safety Report 19042300 (Version 5)
Quarter: 2021Q3

REPORT INFORMATION
  Report Type: Spontaneous
  Country: US (occurrence: US)
  Receive Date: 20210323
  Receipt Date: 20210816
  Transmission Date: 20211014
  Serious: Yes (Death, Hospitalization, Other)
  Sender: FDA-Public Use
  Company Number: US-AMNEAL PHARMACEUTICALS-2021-AMRX-00817

PATIENT
  Age: 87 Year
  Sex: Male

DRUGS (2)
  1. RYTARY [Suspect]
     Active Substance: CARBIDOPA\LEVODOPA
     Dosage: 36.25/145MG 1 CAPSULES, 4 /DAY, AT 3AM, 2PM, 6PM, AND 10PM
     Route: 048
  2. RYTARY [Suspect]
     Active Substance: CARBIDOPA\LEVODOPA
     Indication: PARKINSON^S DISEASE
     Dosage: 48.75/195MG, 3 CAPSULES AT 10AM, 2 CAPSULES AT 2 PM, 6PM AND 10 PM, 1 CAPSULE AT 3 AM
     Route: 048

REACTIONS (7)
  - Adverse event [Fatal]
  - Cystitis [Not Recovered/Not Resolved]
  - Asthenia [Unknown]
  - Aneurysm [Recovering/Resolving]
  - Balance disorder [Unknown]
  - Prescribed overdose [Unknown]
  - Gastrointestinal disorder [Unknown]

NARRATIVE: CASE EVENT DATE: 20210612
